FAERS Safety Report 5030313-4 (Version None)
Quarter: 2006Q2

REPORT INFORMATION
  Report Type: 
  Country: None (occurrence: None)
  Receive Date: 20060614
  Receipt Date: 20060605
  Transmission Date: 20061013
  Serious: Yes (Other)
  Sender: FDA-Public Use
  Company Number: 2006072225

PATIENT
  Age: 84 Year
  Sex: Male
  Weight: 77.1115 kg

DRUGS (2)
  1. NORVASC [Suspect]
     Indication: HYPERTENSION
     Dosage: 10 MG (10 MG, QD INTERVAL: EVERYDAY)
     Dates: start: 20000101, end: 20041101
  2. ALL OTHER THERAPEUTIC PRODUCTS (ALL OTHER THERAPEUTIC PRODUCTS) [Concomitant]

REACTIONS (2)
  - NEOPLASM MALIGNANT [None]
  - RENAL DISORDER [None]
